FAERS Safety Report 8716431 (Version 2)
Quarter: 2013Q4

REPORT INFORMATION
  Report Type: Spontaneous
  Country: US (occurrence: US)
  Receive Date: 20120810
  Receipt Date: 20131101
  Transmission Date: 20140711
  Serious: Yes (Other)
  Sender: FDA-Public Use
  Company Number: US-009507513-1207USA010461

PATIENT
  Age: 58 Year
  Sex: Female

DRUGS (2)
  1. ZOCOR [Suspect]
  2. ORENCIA [Suspect]
     Route: 042

REACTIONS (3)
  - Liver function test abnormal [Unknown]
  - Myopathy [Unknown]
  - Malaise [Unknown]
